FAERS Safety Report 24857606 (Version 5)
Quarter: 2025Q3

REPORT INFORMATION
  Report Type: Other
  Country: US (occurrence: US)
  Receive Date: 20250117
  Receipt Date: 20250911
  Transmission Date: 20251021
  Serious: Yes (Hospitalization, Other)
  Sender: TRAVERE THERAPEUTICS
  Company Number: US-TRAVERE-2024TVT01329

PATIENT
  Age: 76 Year
  Sex: Male

DRUGS (2)
  1. FILSPARI [Suspect]
     Active Substance: SPARSENTAN
     Indication: IgA nephropathy
     Dosage: TAKE 1 TABLET BY MOUTH 1 TIME A DAY FOR DAYS 1-14 THEN 2 TABLETS BY MOUTH 1 TIME A DAY ON DAYS 15-30
     Route: 048
     Dates: start: 20241206
  2. TARPEYO [Suspect]
     Active Substance: BUDESONIDE
     Indication: Product used for unknown indication
     Route: 065
     Dates: start: 20241106

REACTIONS (10)
  - Hospitalisation [Unknown]
  - Cholecystectomy [Unknown]
  - Dysphonia [None]
  - Nasopharyngitis [Recovered/Resolved]
  - Rhinorrhoea [None]
  - Nasal congestion [Unknown]
  - Hypopnoea [Unknown]
  - Insomnia [Recovering/Resolving]
  - Renal disorder [Unknown]
  - Discomfort [Unknown]
